FAERS Safety Report 4844942-1 (Version None)
Quarter: 2005Q4

REPORT INFORMATION
  Report Type: 
  Country: None (occurrence: None)
  Receive Date: 20051205
  Receipt Date: 20050523
  Transmission Date: 20060501
  Serious: Yes (Hospitalization, Other)
  Sender: FDA-Public Use
  Company Number: US-BRISTOL-MYERS SQUIBB COMPANY-12984613

PATIENT
  Sex: Male

DRUGS (9)
  1. SUSTIVA [Suspect]
     Indication: HIV INFECTION
     Route: 048
     Dates: start: 20030210
  2. ZERIT [Suspect]
     Indication: HIV INFECTION
     Route: 048
     Dates: start: 20030210
  3. VIDEX [Concomitant]
  4. DEPAKOTE [Concomitant]
  5. ZOLOFT [Concomitant]
  6. WELLBUTRIN XL [Concomitant]
  7. TOPROL-XL [Concomitant]
  8. HYZAAR [Concomitant]
     Dosage: DOSE: 100/25
  9. GLUCOPHAGE [Concomitant]

REACTIONS (5)
  - ABNORMAL DREAMS [None]
  - CEREBROVASCULAR ACCIDENT [None]
  - DIZZINESS [None]
  - LIPODYSTROPHY ACQUIRED [None]
  - VISUAL ACUITY REDUCED [None]
